FAERS Safety Report 8911420 (Version 3)
Quarter: 2013Q2

REPORT INFORMATION
  Report Type: Spontaneous
  Country: GB (occurrence: None)
  Receive Date: 20121113
  Receipt Date: 20130528
  Transmission Date: 20140414
  Serious: Yes (Hospitalization)
  Sender: FDA-Public Use
  Company Number: AUR-APU-2012-04828

PATIENT
  Age: 24 Year
  Sex: Male

DRUGS (2)
  1. LAMOTRIGINE [Suspect]
     Indication: EPILEPSY
     Dosage: 400 MG (200 MG , 2 IN I D)
     Route: 048
  2. CLOBAZAM [Suspect]
     Indication: EPILEPTIC AURA
     Dosage: (AS REQUIRED)

REACTIONS (4)
  - Feeling of despair [None]
  - Suicide attempt [None]
  - Intentional overdose [None]
  - Epilepsy [None]
